FAERS Safety Report 15243680 (Version 1)
Quarter: 2018Q3

REPORT INFORMATION
  Report Type: Spontaneous
  Country: US (occurrence: US)
  Receive Date: 20180712
  Receipt Date: 20180712
  Transmission Date: 20181010
  Serious: No
  Sender: FDA-Public Use
  Company Number: None

PATIENT
  Age: 61 Year
  Sex: Female

DRUGS (1)
  1. ADCIRCA [Suspect]
     Active Substance: TADALAFIL
     Route: 048

REACTIONS (4)
  - Pain in extremity [None]
  - Pain of skin [None]
  - Therapy change [None]
  - Neuropathy peripheral [None]

NARRATIVE: CASE EVENT DATE: 20180712
